FAERS Safety Report 10385696 (Version 2)
Quarter: 2014Q3

REPORT INFORMATION
  Report Type: Spontaneous
  Country: FR (occurrence: FR)
  Receive Date: 20140814
  Receipt Date: 20140815
  Transmission Date: 20150326
  Serious: Yes (Life-Threatening, Hospitalization, Other)
  Sender: FDA-Public Use
  Company Number: FR-PFIZER INC-2014224951

PATIENT
  Age: 42 Year
  Sex: Male

DRUGS (9)
  1. TRANXENE T-TAB [Interacting]
     Active Substance: CLORAZEPATE DIPOTASSIUM
     Dosage: 10 MG, 4X/DAY
     Route: 048
     Dates: start: 20140625, end: 20140721
  2. TIAPRIDAL [Interacting]
     Active Substance: TIAPRIDE HYDROCHLORIDE
     Dosage: 100 MG, 3X/DAY
     Route: 048
     Dates: start: 20140625, end: 20140721
  3. EFFEXOR LP [Suspect]
     Active Substance: VENLAFAXINE HYDROCHLORIDE
     Dosage: 225 MG, 1X/DAY
     Route: 048
     Dates: start: 20140625, end: 20140721
  4. VALDOXAN [Interacting]
     Active Substance: AGOMELATINE
     Dosage: 25 MG, 2X/DAY
     Route: 048
     Dates: start: 20140718, end: 20140721
  5. THERALENE [Interacting]
     Active Substance: TRIMEPRAZINE
     Dosage: 25 MG, 1X/DAY IN THE EVENING
     Route: 048
     Dates: start: 20140627, end: 20140721
  6. ATARAX [Interacting]
     Active Substance: HYDROXYZINE\HYDROXYZINE HYDROCHLORIDE
     Dosage: AS NEEDED (MAXIMUM THRICE DAILY)
     Dates: start: 20140627, end: 20140721
  7. SEROQUEL [Interacting]
     Active Substance: QUETIAPINE FUMARATE
     Dosage: 300 MG, 1X/DAY
     Route: 048
     Dates: start: 20140625, end: 20140721
  8. NOCTAMID [Interacting]
     Active Substance: LORMETAZEPAM
     Dosage: 2 MG, 1X/DAY
     Route: 048
     Dates: start: 20140625, end: 20140721
  9. TERCIAN [Interacting]
     Active Substance: CYAMEMAZINE
     Dosage: 25 MG, 4X/DAY
     Route: 048
     Dates: start: 20140625, end: 20140721

REACTIONS (5)
  - Cardio-respiratory arrest [Unknown]
  - Pneumonia aspiration [Unknown]
  - Drug interaction [Unknown]
  - Coma [Unknown]
  - Rhabdomyolysis [Unknown]

NARRATIVE: CASE EVENT DATE: 2014
